FAERS Safety Report 9624435 (Version 3)
Quarter: 2014Q2

REPORT INFORMATION
  Report Type: Spontaneous
  Country: US (occurrence: US)
  Receive Date: 20131015
  Receipt Date: 20140404
  Transmission Date: 20141212
  Serious: Yes (Other)
  Sender: FDA-Public Use
  Company Number: US-PFIZER INC-2013293473

PATIENT
  Age: 76 Year
  Sex: Female
  Weight: 53.97 kg

DRUGS (4)
  1. CADUET [Suspect]
     Indication: HYPERTENSION
     Dosage: [AMLODIPINE BESILATE 5MG]/ [ATORVASTATIN CALCIUM 20MG], DAILY
     Dates: start: 2006
  2. CADUET [Suspect]
     Dosage: UNK
  3. PAXIL [Concomitant]
     Indication: NERVOUSNESS
     Dosage: 20 MG, 2X/DAY
  4. PAXIL [Concomitant]
     Indication: TREMOR

REACTIONS (5)
  - Heart rate decreased [Unknown]
  - Influenza [Not Recovered/Not Resolved]
  - Drug dose omission [Unknown]
  - Asthenia [Unknown]
  - Nervousness [Unknown]
